FAERS Safety Report 8071668 (Version 3)
Quarter: 2013Q4

REPORT INFORMATION
  Report Type: Spontaneous
  Country: US (occurrence: US)
  Receive Date: 20110805
  Receipt Date: 20131017
  Transmission Date: 20140711
  Serious: Yes (Death, Hospitalization)
  Sender: FDA-Public Use
  Company Number: US-B.I. PHARMACEUTICALS,INC./RIDGEFIELD-2011-BP-18425BP

PATIENT
  Age: 82 Year
  Sex: Female

DRUGS (12)
  1. PRADAXA [Suspect]
     Indication: ATRIAL FIBRILLATION
     Dosage: 300 MG
     Route: 048
     Dates: start: 20110723
  2. PRADAXA [Suspect]
     Indication: CARDIAC DISORDER
  3. CARDIZEM [Concomitant]
     Indication: HYPERTENSION
     Dosage: 240 MG
     Route: 048
  4. LASIX [Concomitant]
     Indication: HYPERTENSION
  5. SINGULAIR [Concomitant]
     Indication: CHRONIC OBSTRUCTIVE PULMONARY DISEASE
  6. ADVAIR DISKUS [Concomitant]
     Indication: CHRONIC OBSTRUCTIVE PULMONARY DISEASE
     Route: 055
  7. AVAPRO [Concomitant]
     Indication: HYPERTENSION
  8. ATROVENT NASAL SPRAY [Concomitant]
     Indication: HYPERSENSITIVITY
  9. WELCHOL [Concomitant]
     Indication: BLOOD CHOLESTEROL INCREASED
  10. KLOR-CON [Concomitant]
     Indication: SUPPLEMENTATION THERAPY
  11. CARTIA [Concomitant]
  12. AMIODARONE [Concomitant]

REACTIONS (2)
  - Haemorrhage [Fatal]
  - Dizziness [Recovered/Resolved]
